FAERS Safety Report 13572109 (Version 1)
Quarter: 2017Q2

REPORT INFORMATION
  Report Type: Spontaneous
  Country: US (occurrence: US)
  Receive Date: 20170523
  Receipt Date: 20170523
  Transmission Date: 20170830
  Serious: Yes (Hospitalization)
  Sender: FDA-Public Use
  Company Number: None

PATIENT
  Age: 67 Year
  Sex: Female

DRUGS (1)
  1. STELARA [Suspect]
     Active Substance: USTEKINUMAB
     Indication: PSORIASIS
     Dosage: 45MG Q12WEEKS SUBQ
     Route: 058
     Dates: start: 20150210, end: 201702

REACTIONS (1)
  - Limb injury [None]

NARRATIVE: CASE EVENT DATE: 20170224
